FAERS Safety Report 10335744 (Version 2)
Quarter: 2014Q3

REPORT INFORMATION
  Report Type: Spontaneous
  Country: US (occurrence: US)
  Receive Date: 20140723
  Receipt Date: 20140723
  Transmission Date: 20150326
  Serious: Yes (Hospitalization)
  Sender: FDA-Public Use
  Company Number: US-BRISTOL-MYERS SQUIBB COMPANY-19104140

PATIENT
  Age: 71 Year
  Sex: Male
  Weight: 89.34 kg

DRUGS (9)
  1. COUMADIN [Suspect]
     Active Substance: WARFARIN SODIUM
     Indication: ATRIAL FIBRILLATION
     Dosage: DOSE REDUCED TO 2.5 MG ON 08JUL13?5MG:RX: 89378882?2.5MG:RX: 363412
     Route: 048
     Dates: start: 20110727, end: 20130711
  2. ATENOLOL. [Concomitant]
     Active Substance: ATENOLOL
  3. DIGOXIN. [Concomitant]
     Active Substance: DIGOXIN
  4. BUDESONIDE. [Concomitant]
     Active Substance: BUDESONIDE
     Dosage: 1 DOSAGE FORM = 1 VIAL (0.5MG/2ML)
  5. MELATONIN [Concomitant]
     Active Substance: MELATONIN
  6. PRAVASTATIN SODIUM. [Concomitant]
     Active Substance: PRAVASTATIN SODIUM
  7. IPRATROPIUM BROMIDE. [Concomitant]
     Active Substance: IPRATROPIUM BROMIDE
     Dosage: 1 DOSAGE FORM = 1 VIAL (IPRATROPIUM BROMIDE0.02% 2.5ML)
  8. BABY ASPIRIN [Suspect]
     Active Substance: ASPIRIN
  9. WARFARIN SODIUM. [Suspect]
     Active Substance: WARFARIN SODIUM
     Indication: ATRIAL FIBRILLATION
     Route: 048
     Dates: start: 20110727, end: 20130711

REACTIONS (3)
  - Rectal haemorrhage [Unknown]
  - International normalised ratio increased [Unknown]
  - Faeces discoloured [Unknown]
